FAERS Safety Report 8264245-5 (Version None)
Quarter: 2012Q2

REPORT INFORMATION
  Report Type: 
  Country: None (occurrence: None)
  Receive Date: 20120406
  Receipt Date: 20120328
  Transmission Date: 20120825
  Serious: Yes (Hospitalization)
  Sender: FDA-Public Use
  Company Number: DK-JNJFOC-20110302711

PATIENT
  Sex: Male
  Weight: 90 kg

DRUGS (15)
  1. REMICADE [Suspect]
     Indication: SERONEGATIVE ARTHRITIS
     Route: 042
     Dates: start: 20091215, end: 20091215
  2. REMICADE [Suspect]
     Route: 042
  3. ACETAMINOPHEN [Concomitant]
     Route: 048
  4. IBUPROFEN [Concomitant]
     Route: 048
  5. SIMVASTATIN [Concomitant]
     Route: 048
  6. ENBREL [Suspect]
     Indication: SERONEGATIVE ARTHRITIS
     Route: 058
     Dates: start: 20100226, end: 20101116
  7. PREDNISOLONE [Concomitant]
  8. METHOTREXATE SODIUM [Concomitant]
  9. CALCIUM CARBONATE [Concomitant]
     Route: 065
  10. REMICADE [Suspect]
     Route: 042
  11. ALENDRONATE SODIUM [Concomitant]
     Route: 048
  12. FOLIMET [Concomitant]
     Route: 048
  13. REMICADE [Suspect]
     Route: 042
     Dates: start: 20090907
  14. UNIKALK SENIOR [Concomitant]
  15. ALL OTHER THERAPEUTIC PRODUCTS [Concomitant]
     Route: 065

REACTIONS (1)
  - LANGERHANS' CELL HISTIOCYTOSIS [None]
